FAERS Safety Report 9639439 (Version 1)
Quarter: 2013Q4

REPORT INFORMATION
  Report Type: Spontaneous
  Country: US (occurrence: US)
  Receive Date: 20131022
  Receipt Date: 20131022
  Transmission Date: 20140711
  Serious: No
  Sender: FDA-Public Use
  Company Number: US-009507513-1310USA000907

PATIENT
  Sex: 0

DRUGS (1)
  1. SYLATRON [Suspect]
     Indication: MALIGNANT MELANOMA

REACTIONS (3)
  - Vomiting [Unknown]
  - Nausea [Unknown]
  - Diarrhoea [Unknown]
